FAERS Safety Report 21792293 (Version 2)
Quarter: 2023Q1

REPORT INFORMATION
  Report Type: Spontaneous
  Country: ES (occurrence: ES)
  Receive Date: 20221229
  Receipt Date: 20230111
  Transmission Date: 20230418
  Serious: Yes (Hospitalization, Other)
  Sender: FDA-Public Use
  Company Number: None

PATIENT
  Age: 69 Year
  Sex: Male

DRUGS (3)
  1. DOCETAXEL [Suspect]
     Active Substance: DOCETAXEL
     Indication: Renal cancer
     Route: 042
     Dates: start: 20220621, end: 20221006
  2. GEMCITABINE [Suspect]
     Active Substance: GEMCITABINE
     Indication: Renal cancer
     Route: 042
     Dates: start: 20220621, end: 20221006
  3. AMOXICILLIN\CLAVULANIC ACID [Suspect]
     Active Substance: AMOXICILLIN\CLAVULANIC ACID
     Indication: Respiratory tract infection
     Dosage: AMOXICILLIN/CLAVULANIC ACID 1000MG/100MG
     Route: 042
     Dates: start: 20220929, end: 20221007

REACTIONS (1)
  - Henoch-Schonlein purpura [Recovered/Resolved]

NARRATIVE: CASE EVENT DATE: 20221007
